FAERS Safety Report 23192390 (Version 1)
Quarter: 2023Q4

REPORT INFORMATION
  Report Type: Spontaneous
  Country: BR (occurrence: BR)
  Receive Date: 20231116
  Receipt Date: 20231116
  Transmission Date: 20240109
  Serious: Yes (Other)
  Sender: FDA-Public Use
  Company Number: BR-ABBOTT-2023A-1373058

PATIENT
  Sex: Female
  Weight: 120 kg

DRUGS (1)
  1. SYNTHROID [Suspect]
     Active Substance: LEVOTHYROXINE SODIUM
     Indication: Autoimmune thyroiditis
     Dosage: UNIT DOSE: 150 MCG EVERY DAY, 1 HOUR BEFORE BREAKFAST
     Route: 048
     Dates: start: 2003

REACTIONS (2)
  - Arrhythmia [Unknown]
  - Hormone level abnormal [Unknown]
